FAERS Safety Report 17598961 (Version 1)
Quarter: 2020Q1

REPORT INFORMATION
  Report Type: Spontaneous
  Country: US (occurrence: US)
  Receive Date: 20200327
  Receipt Date: 20200327
  Transmission Date: 20200409
  Serious: Yes (Hospitalization)
  Sender: FDA-Public Use
  Company Number: None

PATIENT
  Age: 48 Year
  Sex: Female

DRUGS (6)
  1. CETIRIZINE [Concomitant]
     Active Substance: CETIRIZINE HYDROCHLORIDE
  2. CIPROFLOXACIN. [Concomitant]
     Active Substance: CIPROFLOXACIN
  3. GABAPENTIN. [Concomitant]
     Active Substance: GABAPENTIN
  4. HUMIRA [Suspect]
     Active Substance: ADALIMUMAB
     Indication: PSORIASIS
     Dosage: ?          OTHER DOSE:1 SYR;OTHER FREQUENCY:Q2WKS;?
     Route: 058
     Dates: start: 20180301
  5. IBUPROFEN. [Concomitant]
     Active Substance: IBUPROFEN
  6. METRONIDAZOL [Concomitant]
     Active Substance: METRONIDAZOLE

REACTIONS (2)
  - Therapy cessation [None]
  - Diverticulitis [None]

NARRATIVE: CASE EVENT DATE: 20200210
